FAERS Safety Report 5128201-8 (Version None)
Quarter: 2006Q4

REPORT INFORMATION
  Report Type: 
  Country: None (occurrence: None)
  Receive Date: 20061011
  Receipt Date: 20061009
  Transmission Date: 20070319
  Serious: Yes (Hospitalization)
  Sender: FDA-Public Use
  Company Number: DK-2006-020908

PATIENT
  Age: 45 Year
  Sex: Female
  Weight: 75 kg

DRUGS (2)
  1. CLIMARA [Suspect]
     Indication: MIGRAINE PROPHYLAXIS
     Dosage: 50 UG/DAY, CONT, TRANSDERMAL
     Route: 062
     Dates: start: 20010921, end: 20050921
  2. LEVONORGESTREL [Suspect]
     Indication: MENSTRUAL DISORDER
     Dosage: 20 UG/DAY, CONT, INTRA-UTERINE
     Route: 015
     Dates: start: 20010301

REACTIONS (4)
  - CEREBRAL ISCHAEMIA [None]
  - RETINAL ARTERY OCCLUSION [None]
  - RETINAL PALLOR [None]
  - VISUAL ACUITY REDUCED [None]
